FAERS Safety Report 8583882-1 (Version None)
Quarter: 2012Q3

REPORT INFORMATION
  Report Type: 
  Country: None (occurrence: None)
  Receive Date: 20120810
  Receipt Date: 20120802
  Transmission Date: 20120928
  Serious: Yes (Other)
  Sender: FDA-Public Use
  Company Number: GB-009507513-1208GBR001986

PATIENT

DRUGS (19)
  1. ZOCOR [Suspect]
     Dosage: UNK
     Dates: start: 20120703
  2. ACETAMINOPHEN [Concomitant]
     Dosage: UNK
     Dates: start: 20120416, end: 20120612
  3. ACETAMINOPHEN AND CODEINE PHOSPHATE [Concomitant]
     Dosage: UNK
     Dates: start: 20120531
  4. CONJUGATED ESTROGENS [Concomitant]
     Dosage: UNK
     Dates: start: 20120531
  5. OMEPRAZOLE [Concomitant]
     Dosage: UNK
     Dates: start: 20120416, end: 20120705
  6. UREA [Concomitant]
     Dosage: UNK
     Dates: start: 20120416
  7. MEBEVERINE HYDROCHLORIDE [Concomitant]
     Dosage: UNK
     Dates: start: 20120416
  8. STERIMAR [Concomitant]
     Dosage: UNK
     Dates: start: 20120531
  9. CALCICHEW D3 [Concomitant]
     Dosage: UNK
     Dates: start: 20120416
  10. CONJUGATED ESTROGENS [Concomitant]
     Dosage: UNK
     Dates: start: 20120723
  11. TRAMADOL HYDROCHLORIDE [Concomitant]
     Dosage: UNK
     Dates: start: 20120703
  12. NAPROXEN [Concomitant]
     Dosage: UNK
     Dates: start: 20120413, end: 20120511
  13. ROSUVASTATIN [Concomitant]
     Dosage: UNK
     Dates: start: 20120416
  14. FUROSEMIDE [Concomitant]
     Dosage: UNK
     Dates: start: 20120416
  15. LANSOPRAZOLE [Concomitant]
     Dosage: UNK
     Dates: start: 20120706
  16. PREDNISOLONE [Concomitant]
     Dosage: UNK
     Dates: start: 20120423, end: 20120503
  17. FUSIDIC ACID [Concomitant]
     Dosage: UNK
     Dates: start: 20120723
  18. LACTULOSE [Concomitant]
     Dosage: UNK
     Dates: start: 20120416, end: 20120705
  19. LEVOTHYROXINE SODIUM [Concomitant]
     Dosage: UNK
     Dates: start: 20120416

REACTIONS (4)
  - ABDOMINAL PAIN [None]
  - CHANGE OF BOWEL HABIT [None]
  - MYALGIA [None]
  - SLEEP DISORDER [None]
